FAERS Safety Report 7055098-1 (Version None)
Quarter: 2010Q4

REPORT INFORMATION
  Report Type: 
  Country: None (occurrence: None)
  Receive Date: 20101021
  Receipt Date: 20101014
  Transmission Date: 20110411
  Serious: Yes (Hospitalization, Other)
  Sender: FDA-Public Use
  Company Number: US-RB-025063-09

PATIENT
  Age: 46 Year
  Sex: Female

DRUGS (4)
  1. SUBOXONE TABLET [Suspect]
     Indication: PAIN
     Route: 060
     Dates: start: 20070101, end: 20090401
  2. SUBOXONE TABLET [Suspect]
     Indication: PRODUCT USED FOR UNKNOWN INDICATION
     Dosage: TOOK VARIOUS TAPERING DOSES
     Route: 060
     Dates: start: 20090401, end: 20091106
  3. SUBOXONE TABLET [Suspect]
     Route: 060
     Dates: start: 20091110
  4. SUBOXONE TABLET [Suspect]
     Dosage: DOSAGE INFROMATION UNKNOWN
     Route: 065

REACTIONS (8)
  - BACK INJURY [None]
  - DRUG DEPENDENCE [None]
  - DRUG WITHDRAWAL SYNDROME [None]
  - INSOMNIA [None]
  - NAUSEA [None]
  - PAIN [None]
  - ROAD TRAFFIC ACCIDENT [None]
  - SUICIDAL IDEATION [None]
